FAERS Safety Report 19291483 (Version 1)
Quarter: 2021Q2

REPORT INFORMATION
  Report Type: Spontaneous
  Country: ES (occurrence: ES)
  Receive Date: 20210523
  Receipt Date: 20210523
  Transmission Date: 20210717
  Serious: Yes (Life-Threatening, Hospitalization, Disabling)
  Sender: FDA-Public Use
  Company Number: ES-TEVA-2021-ES-1913514

PATIENT
  Age: 63 Year
  Sex: Female

DRUGS (2)
  1. CISPLATINO (644A) [Suspect]
     Active Substance: CISPLATIN
     Indication: LUNG NEOPLASM MALIGNANT
     Dates: start: 202103, end: 20210407
  2. ETOPOSIDO (518A) [Suspect]
     Active Substance: ETOPOSIDE
     Indication: LUNG NEOPLASM MALIGNANT
     Dates: start: 202103, end: 20210407

REACTIONS (4)
  - Thrombocytopenia [Recovering/Resolving]
  - Peripheral artery thrombosis [Recovering/Resolving]
  - Ischaemic stroke [Recovering/Resolving]
  - Pulmonary embolism [Recovering/Resolving]

NARRATIVE: CASE EVENT DATE: 20210412
